FAERS Safety Report 19804423 (Version 1)
Quarter: 2021Q3

REPORT INFORMATION
  Report Type: Spontaneous
  Country: US (occurrence: US)
  Receive Date: 20210908
  Receipt Date: 20210908
  Transmission Date: 20211014
  Serious: No
  Sender: FDA-Public Use
  Company Number: US-FARMAPROD-202106-0898

PATIENT
  Sex: Female

DRUGS (19)
  1. PROBIOTIC?10 10B [Concomitant]
  2. LORATADINE. [Concomitant]
     Active Substance: LORATADINE
  3. DIPHENHYDRAMINE HCL [Concomitant]
     Active Substance: DIPHENHYDRAMINE HYDROCHLORIDE
  4. FISH OIL/OMEGA?3/VITIMANE D [Concomitant]
  5. CEVIMELINE HCL [Concomitant]
     Active Substance: CEVIMELINE HYDROCHLORIDE
  6. LISINOPRIL. [Concomitant]
     Active Substance: LISINOPRIL
  7. BIOTIN [Concomitant]
     Active Substance: BIOTIN
  8. PRED FORTE [Concomitant]
     Active Substance: PREDNISOLONE ACETATE
  9. ADVANCED ANTACID/ANTIGAS [Concomitant]
  10. DOXYCYCLINE HYCLATE. [Concomitant]
     Active Substance: DOXYCYCLINE HYCLATE
  11. OXERVATE [Suspect]
     Active Substance: CENEGERMIN-BKBJ
     Indication: NEUROTROPHIC KERATOPATHY
     Route: 047
     Dates: start: 20210603
  12. MULTIVITAMIN [Concomitant]
     Active Substance: VITAMINS
  13. CALCIUM/VITAMINE D3 [Concomitant]
     Dosage: 600MG?12.5MG EXTENDED RELEASE TABLET
  14. LEVOTHYROXINE. [Concomitant]
     Active Substance: LEVOTHYROXINE
  15. ASPIRINE [Concomitant]
     Active Substance: ASPIRIN
  16. REFRESH CLASSIC [Concomitant]
     Active Substance: POLYVINYL ALCOHOL\POVIDONE
  17. MELATONIN [Concomitant]
     Active Substance: MELATONIN
  18. ELIQUIS [Concomitant]
     Active Substance: APIXABAN
  19. HYDROCHLOROTHIAZIDE. [Concomitant]
     Active Substance: HYDROCHLOROTHIAZIDE

REACTIONS (3)
  - Visual impairment [Unknown]
  - Swelling of eyelid [Unknown]
  - Erythema of eyelid [Unknown]
